FAERS Safety Report 21403218 (Version 23)
Quarter: 2025Q1

REPORT INFORMATION
  Report Type: Report from Study
  Country: US (occurrence: US)
  Receive Date: 20221003
  Receipt Date: 20250211
  Transmission Date: 20250408
  Serious: Yes (Hospitalization, Other)
  Sender: TAKEDA
  Company Number: US-TAKEDA-2022TUS010146

PATIENT
  Age: 37 Year
  Sex: Female
  Weight: 83 kg

DRUGS (36)
  1. HUMAN IMMUNOGLOBULIN G [Suspect]
     Active Substance: HUMAN IMMUNOGLOBULIN G
     Indication: Combined immunodeficiency
     Dosage: 40 GRAM, Q2WEEKS
     Dates: start: 20220131
  2. HUMAN IMMUNOGLOBULIN G [Suspect]
     Active Substance: HUMAN IMMUNOGLOBULIN G
     Dosage: 40 GRAM, Q2WEEKS
     Dates: start: 20220316
  3. HUMAN IMMUNOGLOBULIN G [Suspect]
     Active Substance: HUMAN IMMUNOGLOBULIN G
     Dosage: 40 GRAM, Q2WEEKS
     Dates: start: 20230323
  4. HUMAN IMMUNOGLOBULIN G [Suspect]
     Active Substance: HUMAN IMMUNOGLOBULIN G
     Dosage: 40 GRAM, Q2WEEKS
  5. BENADRYL [Suspect]
     Active Substance: DIPHENHYDRAMINE HYDROCHLORIDE
     Indication: Product used for unknown indication
  6. ASPIRIN [Suspect]
     Active Substance: ASPIRIN
     Indication: Product used for unknown indication
  7. ELIQUIS [Concomitant]
     Active Substance: APIXABAN
  8. HEPARIN [Concomitant]
     Active Substance: HEPARIN SODIUM
  9. ADDERALL [Concomitant]
     Active Substance: AMPHETAMINE ASPARTATE\AMPHETAMINE SULFATE\DEXTROAMPHETAMINE SACCHARATE\DEXTROAMPHETAMINE SULFATE
  10. DEXAMETHASONE [Concomitant]
     Active Substance: DEXAMETHASONE
  11. DIPHENHYDRAMINE [Concomitant]
     Active Substance: DIPHENHYDRAMINE
  12. HYDROXYZINE HYDROCHLORIDE [Concomitant]
     Active Substance: HYDROXYZINE HYDROCHLORIDE
  13. SODIUM CHLORIDE [Concomitant]
     Active Substance: SODIUM CHLORIDE
  14. JUNEL FE 1/20 [Concomitant]
     Active Substance: ETHINYL ESTRADIOL\NORETHINDRONE ACETATE
  15. EPINEPHRINE [Concomitant]
     Active Substance: EPINEPHRINE
  16. PROMETHAZINE HYDROCHLORIDE [Concomitant]
     Active Substance: PROMETHAZINE HYDROCHLORIDE
  17. GABAPENTIN [Concomitant]
     Active Substance: GABAPENTIN
  18. ACETAMINOPHEN [Concomitant]
     Active Substance: ACETAMINOPHEN
  19. SODIUM CHLORIDE [Concomitant]
     Active Substance: SODIUM CHLORIDE
  20. ALBUTEROL SULFATE [Concomitant]
     Active Substance: ALBUTEROL SULFATE
  21. DEXTROSE [Concomitant]
     Active Substance: DEXTROSE MONOHYDRATE
  22. Lmx [Concomitant]
  23. CYCLOBENZAPRINE HYDROCHLORIDE [Concomitant]
     Active Substance: CYCLOBENZAPRINE HYDROCHLORIDE
  24. LIDOCAINE [Concomitant]
     Active Substance: LIDOCAINE
  25. XARELTO [Concomitant]
     Active Substance: RIVAROXABAN
  26. NORETHINDRONE [Concomitant]
     Active Substance: NORETHINDRONE
  27. ARGININE [Concomitant]
     Active Substance: ARGININE
  28. ESOMEPRAZOLE MAGNESIUM [Concomitant]
     Active Substance: ESOMEPRAZOLE MAGNESIUM
  29. ONDANSETRON HYDROCHLORIDE [Concomitant]
     Active Substance: ONDANSETRON HYDROCHLORIDE
  30. ADVAIR HFA [Concomitant]
     Active Substance: FLUTICASONE PROPIONATE\SALMETEROL XINAFOATE
  31. CEFPROZIL [Concomitant]
     Active Substance: CEFPROZIL
  32. FAMOTIDINE [Concomitant]
     Active Substance: FAMOTIDINE
  33. PROMETHAZINE [Concomitant]
     Active Substance: PROMETHAZINE HYDROCHLORIDE
  34. TRAMADOL [Concomitant]
     Active Substance: TRAMADOL
  35. ESOMEPRAZOLE [Concomitant]
     Active Substance: ESOMEPRAZOLE
  36. DIPHENHYDRAMINE HYDROCHLORIDE [Concomitant]
     Active Substance: DIPHENHYDRAMINE HYDROCHLORIDE

REACTIONS (32)
  - Superior vena cava stenosis [Unknown]
  - Arterial stenosis [Unknown]
  - Kidney infection [Unknown]
  - Pneumonitis [Unknown]
  - Pneumonia [Recovering/Resolving]
  - Thrombosis [Unknown]
  - Arterial thrombosis [Unknown]
  - Illness [Unknown]
  - Insurance issue [Unknown]
  - Product use issue [Unknown]
  - Ear infection [Unknown]
  - Tenderness [Recovered/Resolved]
  - Poor venous access [Unknown]
  - Pleural effusion [Unknown]
  - Nasopharyngitis [Unknown]
  - Swelling face [Recovered/Resolved]
  - Dermatitis contact [Unknown]
  - Blister [Unknown]
  - Restless legs syndrome [Unknown]
  - Product dose omission issue [Unknown]
  - Respiratory tract infection [Unknown]
  - Drug hypersensitivity [Unknown]
  - Sinusitis [Recovered/Resolved]
  - Influenza [Recovered/Resolved]
  - Hypoaesthesia [Unknown]
  - Tachycardia [Unknown]
  - Hypertension [Unknown]
  - Influenza like illness [Recovered/Resolved]
  - Arthralgia [Unknown]
  - Back pain [Unknown]
  - Pyrexia [Recovered/Resolved]
  - Nausea [Recovering/Resolving]

NARRATIVE: CASE EVENT DATE: 20220131
